FAERS Safety Report 14336644 (Version 3)
Quarter: 2024Q2

REPORT INFORMATION
  Report Type: Report from Study
  Country: GB (occurrence: GB)
  Receive Date: 20171229
  Receipt Date: 20240531
  Transmission Date: 20240716
  Serious: Yes (Death, Life-Threatening, Hospitalization, Other)
  Sender: FDA-Public Use
  Company Number: GB-CELGENE-GBR-2015050868

PATIENT
  Age: 85 Year
  Sex: Female
  Weight: 64 kg

DRUGS (25)
  1. DEXAMETHASONE [Suspect]
     Active Substance: DEXAMETHASONE
     Indication: Plasma cell myeloma
     Dosage: 20 MILLIGRAM, DURATION: 4 DAYS
     Route: 050
     Dates: start: 20150509, end: 20150512
  2. DEXAMETHASONE [Suspect]
     Active Substance: DEXAMETHASONE
     Indication: Plasma cell myeloma
     Dosage: FREQUENCY TEXT: NOT PROVIDED;
     Route: 050
     Dates: start: 20150417
  3. DEXAMETHASONE [Suspect]
     Active Substance: DEXAMETHASONE
     Indication: Plasma cell myeloma
     Dosage: FREQUENCY TEXT: NOT PROVIDED;
     Route: 050
     Dates: start: 20150424
  4. DEXAMETHASONE [Suspect]
     Active Substance: DEXAMETHASONE
     Indication: Plasma cell myeloma
     Dosage: CYCLE 3; ;
     Route: 050
     Dates: start: 20150611
  5. DEXAMETHASONE [Suspect]
     Active Substance: DEXAMETHASONE
     Indication: Plasma cell myeloma
     Dosage: FREQUENCY TEXT: NOT PROVIDED;
     Route: 050
     Dates: start: 20150622
  6. DEXAMETHASONE [Suspect]
     Active Substance: DEXAMETHASONE
     Indication: Plasma cell myeloma
     Dosage: FREQUENCY TEXT: NOT PROVIDED;
     Route: 050
     Dates: start: 20150629
  7. DEXAMETHASONE [Suspect]
     Active Substance: DEXAMETHASONE
     Indication: Plasma cell myeloma
     Dosage: FREQUENCY TEXT: NOT PROVIDED;
     Route: 050
     Dates: start: 20150615
  8. DEXAMETHASONE [Suspect]
     Active Substance: DEXAMETHASONE
     Indication: Plasma cell myeloma
     Dosage: FREQUENCY TEXT: NOT PROVIDED;
     Route: 050
     Dates: start: 20150706
  9. COTRIMOXAZOLE [Concomitant]
     Active Substance: SULFAMETHOXAZOLE\TRIMETHOPRIM
     Indication: Infection prophylaxis
     Dosage: FREQUENCY TEXT: M,W,F, 960 MILLIGRAM, DURATION: 7 DAYS
     Dates: start: 20150417, end: 20150424
  10. CHOLECALCIFEROL [Concomitant]
     Active Substance: CHOLECALCIFEROL
     Indication: Vitamin supplementation
     Dosage: FREQUENCY TEXT: NOT PROVIDED;
     Route: 050
     Dates: end: 20150527
  11. OMEPRAZOLE [Concomitant]
     Active Substance: DONEPEZIL HYDROCHLORIDE\OMEPRAZOLE\OMEPRAZOLE MAGNESIUM
     Indication: Gastrooesophageal reflux disease
     Dosage: FREQUENCY TEXT: NOT PROVIDED;
     Route: 050
  12. METOCLOPRAMIDE [Concomitant]
     Active Substance: METOCLOPRAMIDE
     Indication: Prophylaxis
     Dosage: FREQUENCY TEXT: NOT PROVIDED;
     Route: 050
     Dates: start: 20150417
  13. ALLOPURINOL [Concomitant]
     Active Substance: ALLOPURINOL
     Indication: Prophylaxis
     Dosage: FREQUENCY TEXT: NONE PROVIDED; DURATION: 7 DAYS
     Route: 050
     Dates: start: 20150417, end: 20150424
  14. ERYTHROMYCIN [Concomitant]
     Active Substance: ERYTHROMYCIN
     Indication: Meningitis
     Dosage: FREQUENCY TEXT: NOT PROVIDED; DURATION: 386 DAYS
     Route: 050
     Dates: start: 20140406, end: 20150427
  15. CODEINE [Concomitant]
     Active Substance: CODEINE
     Indication: Pain
     Dosage: FREQUENCY TEXT: NOT PROVIDED;
     Route: 050
  16. ACYCLOVIR [Concomitant]
     Active Substance: ACYCLOVIR
     Indication: Antiviral prophylaxis
     Dosage: 800 MILLIGRAM
     Route: 050
     Dates: start: 20150417
  17. DALTEPARIN [Concomitant]
     Active Substance: DALTEPARIN
     Indication: Thrombosis prophylaxis
     Dosage: FREQUENCY TEXT: NOT PROVIDED;
     Route: 050
     Dates: start: 20150417
  18. ACETAMINOPHEN [Concomitant]
     Active Substance: ACETAMINOPHEN
     Indication: Pain
     Dosage: FREQUENCY TEXT: NOT PROVIDED;
     Route: 050
  19. POMALIDOMIDE [Suspect]
     Active Substance: POMALIDOMIDE
     Indication: Plasma cell myeloma
     Dosage: 4 MILLIGRAM; TIME INTERVAL: 1.33 D, DURATION: 10 DAYS
     Route: 050
     Dates: start: 20150430, end: 20150510
  20. POMALIDOMIDE [Suspect]
     Active Substance: POMALIDOMIDE
     Indication: Plasma cell myeloma
     Dosage: 4 MILLIGRAM; TIME INTERVAL: 1.33 D, DURATION: 10 DAYS
     Route: 050
     Dates: start: 20150417, end: 20150426
  21. POMALIDOMIDE [Suspect]
     Active Substance: POMALIDOMIDE
     Indication: Plasma cell myeloma
     Dosage: CYCLE 3; ;
     Route: 050
     Dates: start: 20150611
  22. POMALIDOMIDE [Suspect]
     Active Substance: POMALIDOMIDE
     Indication: Plasma cell myeloma
     Dosage: DURATION: 21 DAYS
     Route: 050
     Dates: start: 20150615, end: 20150705
  23. POLYETHYLENE GLYCOLS [Concomitant]
     Active Substance: POLYETHYLENE GLYCOLS
     Indication: Constipation
     Dosage: UNIT DOSE: 1, FREQUENCY TEXT: NOT PROVIDED, 1 SACHET
     Route: 050
  24. AMLODIPINE [Concomitant]
     Active Substance: AMLODIPINE BESYLATE
     Indication: Hypertension
     Dosage: FREQUENCY TEXT: NOT PROVIDED;
     Route: 050
     Dates: start: 2004
  25. ALBUTEROL [Concomitant]
     Active Substance: ALBUTEROL
     Indication: Asthma
     Dosage: FREQUENCY TEXT: NOT PROVIDED;
     Route: 050

REACTIONS (15)
  - Plasma cell myeloma [Fatal]
  - Malaise [Fatal]
  - Pruritus [Recovered/Resolved]
  - Pyrexia [Fatal]
  - Hyponatraemia [Fatal]
  - Anaemia [Fatal]
  - Pneumonia [Fatal]
  - Non-cardiac chest pain [Fatal]
  - Productive cough [Recovered/Resolved]
  - Epistaxis [Recovered/Resolved]
  - General physical health deterioration [Fatal]
  - Fall [Fatal]
  - Dyspnoea [Fatal]
  - Urinary tract infection [Recovered/Resolved]
  - Hypercalcaemia [Fatal]

NARRATIVE: CASE EVENT DATE: 20150418
